FAERS Safety Report 7360252-5 (Version None)
Quarter: 2011Q1

REPORT INFORMATION
  Report Type: 
  Country: None (occurrence: None)
  Receive Date: 20110318
  Receipt Date: 20110307
  Transmission Date: 20110831
  Serious: Yes (Death, Hospitalization)
  Sender: FDA-Public Use
  Company Number: GB-BAXTER-2011BH005768

PATIENT
  Age: 83 Year
  Sex: Male

DRUGS (10)
  1. EXTRANEAL [Suspect]
     Route: 033
     Dates: start: 20101231
  2. DOXAZOSIN [Concomitant]
     Indication: BLOOD PRESSURE MANAGEMENT
     Route: 065
  3. ASPIRIN [Concomitant]
     Indication: BLOOD PRESSURE MANAGEMENT
     Route: 065
  4. EXTRANEAL [Suspect]
     Indication: OFF LABEL USE
     Route: 033
     Dates: end: 20101230
  5. BUMETANIDE [Concomitant]
     Indication: POLYURIA
     Route: 065
  6. ACTONEL [Concomitant]
     Indication: OSTEITIS DEFORMANS
     Route: 065
  7. EXTRANEAL [Suspect]
     Indication: CARDIAC FAILURE
     Route: 033
     Dates: end: 20101230
  8. RANITIL [Concomitant]
     Indication: BLOOD PRESSURE MANAGEMENT
     Route: 065
  9. EXTRANEAL [Suspect]
     Route: 033
     Dates: start: 20101231
  10. ALLOPURINOL [Concomitant]
     Indication: GOUT
     Route: 065

REACTIONS (2)
  - DEATH [None]
  - GASTROINTESTINAL HAEMORRHAGE [None]
